FAERS Safety Report 10261029 (Version 1)
Quarter: 2014Q2

REPORT INFORMATION
  Report Type: Spontaneous
  Country: US (occurrence: None)
  Receive Date: 20140623
  Receipt Date: 20140623
  Transmission Date: 20141212
  Serious: Yes (Hospitalization)
  Sender: FDA-Public Use
  Company Number: 2014VER00027

PATIENT
  Age: 60 Year
  Sex: Female

DRUGS (1)
  1. CLINDAMYCIN (CLINDAMYCIN) [Suspect]

REACTIONS (4)
  - Anaphylactic reaction [None]
  - Respiratory disorder [None]
  - Gastrointestinal disorder [None]
  - Cardiovascular disorder [None]
